FAERS Safety Report 11190090 (Version 1)
Quarter: 2015Q2

REPORT INFORMATION
  Report Type: Spontaneous
  Country: GB (occurrence: GB)
  Receive Date: 20150615
  Receipt Date: 20150615
  Transmission Date: 20150821
  Serious: Yes (Death, Other)
  Sender: FDA-Public Use
  Company Number: GB-CELGENE-GBR-2015062393

PATIENT

DRUGS (2)
  1. REVLIMID [Suspect]
     Active Substance: LENALIDOMIDE
     Indication: LYMPHOMA
     Dosage: 20-25MG
     Route: 048
  2. REVLIMID [Suspect]
     Active Substance: LENALIDOMIDE
     Route: 048

REACTIONS (6)
  - Neutropenia [Unknown]
  - Graft versus host disease in skin [Unknown]
  - Gastroenteritis salmonella [Unknown]
  - Diarrhoea [Unknown]
  - Non-Hodgkin^s lymphoma [Fatal]
  - Pulmonary embolism [Unknown]
